FAERS Safety Report 6094007-9 (Version None)
Quarter: 2009Q1

REPORT INFORMATION
  Report Type: 
  Country: None (occurrence: None)
  Receive Date: 20090226
  Receipt Date: 20090220
  Transmission Date: 20090719
  Serious: Yes (Death, Hospitalization)
  Sender: FDA-Public Use
  Company Number: B0561412A

PATIENT
  Age: 39 Year
  Sex: Female

DRUGS (5)
  1. LAMICTAL [Suspect]
     Indication: DEPRESSION
     Dosage: 100MG PER DAY
     Route: 048
     Dates: start: 20090204, end: 20090211
  2. VALERIAN [Suspect]
     Indication: DRUG USE FOR UNKNOWN INDICATION
     Route: 065
  3. UNSPECIFIED DRUGS [Suspect]
     Indication: DRUG USE FOR UNKNOWN INDICATION
     Route: 065
  4. SEREUPIN [Concomitant]
     Dosage: 20MG PER DAY
     Route: 048
  5. XANAX [Concomitant]
     Route: 048

REACTIONS (10)
  - COMA [None]
  - HEPATIC FAILURE [None]
  - INSOMNIA [None]
  - INTENTIONAL OVERDOSE [None]
  - NEUROLOGICAL DECOMPENSATION [None]
  - OVERDOSE [None]
  - RASH [None]
  - RENAL FAILURE ACUTE [None]
  - RESPIRATORY FAILURE [None]
  - SOMNOLENCE [None]
